FAERS Safety Report 13584981 (Version 3)
Quarter: 2017Q4

REPORT INFORMATION
  Report Type: Spontaneous
  Country: AU (occurrence: AU)
  Receive Date: 20170526
  Receipt Date: 20171127
  Transmission Date: 20180320
  Serious: Yes (Hospitalization, Other)
  Sender: FDA-Public Use
  Company Number: AU-SUNOVION-2017DSP000278

PATIENT
  Age: 47 Year
  Sex: Male
  Weight: 134 kg

DRUGS (2)
  1. LATUDA [Suspect]
     Active Substance: LURASIDONE HYDROCHLORIDE
     Dosage: 40 MG, QD
     Route: 048
     Dates: start: 20170214
  2. LATUDA [Suspect]
     Active Substance: LURASIDONE HYDROCHLORIDE
     Indication: SCHIZOPHRENIA
     Dosage: 160 MG, QD
     Route: 048
     Dates: start: 20160920, end: 20170208

REACTIONS (9)
  - Restlessness [Recovering/Resolving]
  - Akathisia [Recovering/Resolving]
  - Weight decreased [Unknown]
  - Body mass index decreased [Unknown]
  - Hallucination [Recovering/Resolving]
  - Thinking abnormal [Recovering/Resolving]
  - Poor personal hygiene [Recovering/Resolving]
  - Psychotic symptom [Recovering/Resolving]
  - Insomnia [Recovering/Resolving]

NARRATIVE: CASE EVENT DATE: 201612
